FAERS Safety Report 19868047 (Version 1)
Quarter: 2021Q3

REPORT INFORMATION
  Report Type: Spontaneous
  Country: DE (occurrence: DE)
  Receive Date: 20210922
  Receipt Date: 20210922
  Transmission Date: 20211014
  Serious: Yes (Hospitalization)
  Sender: FDA-Public Use
  Company Number: DE-PFIZER INC-2021899342

PATIENT

DRUGS (2)
  1. VYNDAQEL [Suspect]
     Active Substance: TAFAMIDIS MEGLUMINE
     Indication: CARDIAC AMYLOIDOSIS
     Dosage: UNK
     Dates: start: 2019
  2. VYNDAQEL [Suspect]
     Active Substance: TAFAMIDIS MEGLUMINE
     Indication: CARDIAC AMYLOIDOSIS
     Dosage: UNK

REACTIONS (7)
  - Abscess [Unknown]
  - Inguinal hernia [Unknown]
  - Myositis [Unknown]
  - Arthritis [Unknown]
  - Pyrexia [Unknown]
  - Arthralgia [Unknown]
  - Sepsis [Unknown]

NARRATIVE: CASE EVENT DATE: 2020
